FAERS Safety Report 4759521-4 (Version None)
Quarter: 2005Q3

REPORT INFORMATION
  Report Type: 
  Country: None (occurrence: None)
  Receive Date: 20050826
  Receipt Date: 20050629
  Transmission Date: 20060218
  Serious: No
  Sender: FDA-Public Use
  Company Number: 215730

PATIENT
  Age: 52 Year
  Sex: Female

DRUGS (4)
  1. RAPTIVA [Suspect]
     Indication: PSORIASIS
     Dosage: 0.7ML 1/WEEK
     Dates: start: 20041001, end: 20050324
  2. LIPITOR [Concomitant]
  3. EVISTA [Concomitant]
  4. FLAXSEED(LINSEED) [Concomitant]

REACTIONS (1)
  - PSORIASIS [None]
